FAERS Safety Report 25201602 (Version 1)
Quarter: 2025Q2

REPORT INFORMATION
  Report Type: Spontaneous
  Country: US (occurrence: US)
  Receive Date: 20250416
  Receipt Date: 20250416
  Transmission Date: 20250717
  Serious: Yes (Hospitalization)
  Sender: CALLIDITAS THERAPEUTICS
  Company Number: US-Calliditas-2025CAL00958

PATIENT
  Age: 71 Year
  Sex: Male

DRUGS (15)
  1. TARPEYO [Suspect]
     Active Substance: BUDESONIDE
     Indication: IgA nephropathy
     Route: 048
     Dates: start: 202311
  2. ALLOPURINOL [Concomitant]
     Active Substance: ALLOPURINOL
  3. NORVASC [Concomitant]
     Active Substance: AMLODIPINE BESYLATE
  4. ELIQUIS [Concomitant]
     Active Substance: APIXABAN
  5. LIPITOR [Concomitant]
     Active Substance: ATORVASTATIN CALCIUM
  6. FARXIGA [Concomitant]
     Active Substance: DAPAGLIFLOZIN PROPANEDIOL
  7. LASIX [Concomitant]
     Active Substance: FUROSEMIDE
  8. GABAPENTIN [Concomitant]
     Active Substance: GABAPENTIN
  9. LISINOPRIL [Concomitant]
     Active Substance: LISINOPRIL
  10. PLAQUENIL [Concomitant]
     Active Substance: HYDROXYCHLOROQUINE SULFATE
  11. METFORMIN [Concomitant]
     Active Substance: METFORMIN HYDROCHLORIDE
  12. TOPROL XL [Concomitant]
     Active Substance: METOPROLOL SUCCINATE
  13. NATEGLINIDE [Concomitant]
     Active Substance: NATEGLINIDE
  14. VITAMINS NOS [Concomitant]
     Active Substance: VITAMINS
  15. PROTONIX [Concomitant]
     Active Substance: PANTOPRAZOLE SODIUM

REACTIONS (2)
  - Renal failure [Unknown]
  - Dialysis [Unknown]
